FAERS Safety Report 6093792-X (Version None)
Quarter: 2009Q1

REPORT INFORMATION
  Report Type: 
  Country: None (occurrence: None)
  Receive Date: 20090226
  Receipt Date: 20090218
  Transmission Date: 20090719
  Serious: Yes (Hospitalization)
  Sender: FDA-Public Use
  Company Number: DE-ABBOTT-09P-062-0558000-00

PATIENT
  Sex: Male
  Weight: 78 kg

DRUGS (4)
  1. KALETRA [Suspect]
     Indication: HIV INFECTION
     Route: 048
     Dates: start: 20071129
  2. ABACAVIR SULFATE/LAMIVUDINE [Concomitant]
     Indication: HIV INFECTION
     Route: 048
     Dates: start: 20071129
  3. PARACODIN BITARTRATE TAB [Concomitant]
     Indication: PAIN
     Route: 048
     Dates: start: 20080414, end: 20080430
  4. COTRIM [Concomitant]
     Indication: PROPHYLAXIS AGAINST HIV INFECTION

REACTIONS (1)
  - NON-HODGKIN'S LYMPHOMA [None]
